FAERS Safety Report 6733510-2 (Version None)
Quarter: 2010Q2

REPORT INFORMATION
  Report Type: 
  Country: None (occurrence: None)
  Receive Date: 20100518
  Receipt Date: 20100503
  Transmission Date: 20101027
  Serious: Yes (Death, Hospitalization)
  Sender: FDA-Public Use
  Company Number: 2009AC000047

PATIENT
  Age: 75 Year
  Sex: Female
  Weight: 46.7205 kg

DRUGS (13)
  1. DIGOXIN [Suspect]
     Dosage: 0.125 MG; QD; PO
     Route: 048
     Dates: start: 19960301, end: 20080201
  2. DIGOXIN [Suspect]
     Indication: HYPERTENSIVE HEART DISEASE
     Dosage: .125 MG; QD; PO
     Route: 048
     Dates: start: 19960301, end: 19991201
  3. DIGOXIN [Suspect]
     Indication: ATRIAL FIBRILLATION
     Dosage: .125 MG; QD; PO
     Route: 048
     Dates: start: 20000501, end: 20050101
  4. DIGOXIN [Suspect]
     Dosage: .125 MG; BIW; PO
     Route: 048
     Dates: start: 20051001, end: 20080201
  5. DIGOXIN [Suspect]
     Indication: ATRIAL FLUTTER
     Dosage: 0.125 MG; QD; PO
     Route: 048
     Dates: start: 19960301, end: 19991201
  6. DIGOXIN [Suspect]
     Indication: ATRIAL FLUTTER
     Dosage: 0.125 MG; QD; PO
     Route: 048
     Dates: start: 20000401, end: 20051001
  7. DIGOXIN [Suspect]
     Dosage: 0.125 MG; BIW; PO
     Route: 048
     Dates: start: 20051001, end: 20080301
  8. FUROSEMIDE [Concomitant]
  9. MECLIZINE [Concomitant]
  10. ALPRAZOLAM [Concomitant]
  11. XALATAN [Concomitant]
  12. TIMOLOL MALEATE [Concomitant]
  13. ALLOPURINOL [Concomitant]

REACTIONS (21)
  - ABDOMINAL ADHESIONS [None]
  - ANHEDONIA [None]
  - BACK PAIN [None]
  - BRADYCARDIA [None]
  - CARDIAC FAILURE [None]
  - CARDIOACTIVE DRUG LEVEL BELOW THERAPEUTIC [None]
  - DIARRHOEA [None]
  - EMOTIONAL DISORDER [None]
  - FLANK PAIN [None]
  - HAEMORRHOIDS [None]
  - INJURY [None]
  - MENTAL DISORDER [None]
  - MYOCARDIAL INFARCTION [None]
  - OBSTRUCTIVE AIRWAYS DISORDER [None]
  - PAIN [None]
  - PULMONARY OEDEMA [None]
  - RESPIRATORY FAILURE [None]
  - TACHYCARDIA [None]
  - URINE OUTPUT DECREASED [None]
  - VOMITING [None]
  - WEIGHT DECREASED [None]
